FAERS Safety Report 6340261-5 (Version None)
Quarter: 2009Q3

REPORT INFORMATION
  Report Type: 
  Country: None (occurrence: None)
  Receive Date: 20090902
  Receipt Date: 20090817
  Transmission Date: 20100115
  Serious: Yes (Other)
  Sender: FDA-Public Use
  Company Number: PHHY2009PT34542

PATIENT
  Sex: Female

DRUGS (2)
  1. VISUDYNE [Suspect]
     Indication: DRUG EXPOSURE DURING PREGNANCY
  2. FLUORESCEIN [Concomitant]

REACTIONS (2)
  - MATERNAL DRUGS AFFECTING FOETUS [None]
  - PREMATURE BABY [None]
